FAERS Safety Report 21169452 (Version 1)
Quarter: 2022Q3

REPORT INFORMATION
  Report Type: Spontaneous
  Country: NL (occurrence: NL)
  Receive Date: 20220804
  Receipt Date: 20220804
  Transmission Date: 20221027
  Serious: Yes (Hospitalization)
  Sender: FDA-Public Use
  Company Number: None

PATIENT
  Sex: Male
  Weight: 86 kg

DRUGS (1)
  1. COTRIMOXAZOLE [Suspect]
     Active Substance: SULFAMETHOXAZOLE\TRIMETHOPRIM
     Indication: Urinary tract infection
     Dosage: 2D1,COTRIMOXAZOL 960 TABLET 160/800MG / BRAND NAME NOT SPECIFIED,FREQUENCY TIME 12HRS, DURATION 9DAY
     Route: 065
     Dates: start: 20220707, end: 20220716

REACTIONS (1)
  - Hyponatraemia [Recovering/Resolving]
